FAERS Safety Report 19914372 (Version 1)
Quarter: 2021Q4

REPORT INFORMATION
  Report Type: Spontaneous
  Country: DE (occurrence: DE)
  Receive Date: 20211004
  Receipt Date: 20211004
  Transmission Date: 20220303
  Serious: Yes (Hospitalization)
  Sender: FDA-Public Use
  Company Number: DE-TEVA-2021-DE-1915414

PATIENT

DRUGS (2)
  1. CANDESARTAN [Suspect]
     Active Substance: CANDESARTAN
     Indication: Hypertension
     Dosage: 4 MILLIGRAM, QD ( IN THE EVENING)
     Route: 048
  2. CANDESARTAN CILEXETIL\HYDROCHLOROTHIAZIDE [Suspect]
     Active Substance: CANDESARTAN CILEXETIL\HYDROCHLOROTHIAZIDE
     Indication: Product used for unknown indication
     Dosage: 1 DOSAGE FORM, QD (IN THE MORNING; 1 DF CONTAINS TABLET WITH 8 MG CANDESARTANCILEXETIL AND 12,5)
     Route: 048

REACTIONS (4)
  - Chills [Unknown]
  - Blood pressure increased [Recovered/Resolved]
  - Asthenia [Not Recovered/Not Resolved]
  - Dizziness [Unknown]
